FAERS Safety Report 4627755-5 (Version None)
Quarter: 2005Q2

REPORT INFORMATION
  Report Type: 
  Country: None (occurrence: None)
  Receive Date: 20050406
  Receipt Date: 20050324
  Transmission Date: 20051028
  Serious: Yes (Death)
  Sender: FDA-Public Use
  Company Number: US-BOEHRINGER INGELHEIM PHARMACEUTICALS, INC.-2005-DE-01210GD

PATIENT
  Age: 11 Year
  Sex: Male
  Weight: 22.9 kg

DRUGS (13)
  1. NEVIRAPINE [Suspect]
     Indication: HIV INFECTION
  2. DIDANOSINE [Suspect]
     Indication: HIV INFECTION
  3. LAMIVUDINE [Suspect]
     Indication: HIV INFECTION
  4. HYDROXYUREA [Suspect]
     Indication: HIV INFECTION
  5. RITONAVIR [Suspect]
     Indication: HIV INFECTION
  6. SAQUINAVIR [Suspect]
     Indication: HIV INFECTION
  7. THALIDOMIDE [Suspect]
  8. DAPSONE [Suspect]
  9. CLONAZEPAM [Suspect]
  10. OMEPRAZOLE [Suspect]
  11. METRONIDAZOLE [Suspect]
  12. FLUCONAZOLE [Suspect]
  13. CIPROFLOXACIN [Suspect]

REACTIONS (3)
  - DRUG INEFFECTIVE [None]
  - HEPATIC FAILURE [None]
  - LIPASE INCREASED [None]
